FAERS Safety Report 4776366-X (Version None)
Quarter: 2005Q3

REPORT INFORMATION
  Report Type: 
  Country: None (occurrence: None)
  Receive Date: 20050921
  Receipt Date: 20050902
  Transmission Date: 20060218
  Serious: Yes (Other)
  Sender: FDA-Public Use
  Company Number: JP_050707181

PATIENT
  Age: 76 Year
  Sex: Female
  Weight: 48 kg

DRUGS (12)
  1. GEMZAR [Suspect]
     Indication: PANCREATIC CARCINOMA
     Dosage: 800 MG OTHER
     Route: 050
     Dates: start: 20050221, end: 20050705
  2. TS 1 [Concomitant]
  3. MIKELAN (CARTEOLOL HYDROCHLORIDE) [Concomitant]
  4. OLMETEC (OLMESARTAN MEDOXOMIL) [Concomitant]
  5. LAC B (LACTOBACILLUS BIFIDUS, LYOPHILIZED [Concomitant]
  6. GASMOTIN (MOSAPRIDE CITRATE) [Concomitant]
  7. RABEPRAZOLE SODIUM [Concomitant]
  8. LENDORM [Concomitant]
  9. MAGNESIUM OXIDE [Concomitant]
  10. PANTOSIN (PANTETHINE) [Concomitant]
  11. DUROTEP (FENTANYL) [Concomitant]
  12. CELTECT (OXATOMIDE) [Concomitant]

REACTIONS (10)
  - ANOREXIA [None]
  - CANCER PAIN [None]
  - CEREBRAL INFARCTION [None]
  - DEHYDRATION [None]
  - DRUG INEFFECTIVE [None]
  - FEELING ABNORMAL [None]
  - PRURITUS [None]
  - PYREXIA [None]
  - SOMNOLENCE [None]
  - THROMBOSIS [None]
